FAERS Safety Report 8998349 (Version 4)
Quarter: 2015Q2

REPORT INFORMATION
  Report Type: Spontaneous
  Country: US (occurrence: US)
  Receive Date: 20130105
  Receipt Date: 20150525
  Transmission Date: 20150821
  Serious: Yes (Other)
  Sender: FDA-Public Use
  Company Number: US-JNJFOC-20121213722

PATIENT
  Age: 77 Year
  Sex: Female

DRUGS (21)
  1. ZINC [Concomitant]
     Active Substance: ZINC\ZINC CHLORIDE
     Route: 065
  2. UNKNOWN MEDICATION [Concomitant]
     Active Substance: UNSPECIFIED INGREDIENT
     Dosage: IN THE MORNING
     Route: 065
  3. ATENOLOL. [Concomitant]
     Active Substance: ATENOLOL
     Indication: CARDIAC DISORDER
     Route: 048
  4. DOXAZOSIN [Concomitant]
     Active Substance: DOXAZOSIN\DOXAZOSIN MESYLATE
     Indication: CARDIAC DISORDER
     Route: 048
  5. NASONEX [Concomitant]
     Active Substance: MOMETASONE FUROATE
     Dosage: IN THE NIGHT
     Route: 065
  6. METRONIDAZOLE. [Concomitant]
     Active Substance: METRONIDAZOLE
     Dosage: 0.75 % IN THE NIGHT
     Route: 065
  7. 7 KETO DHEA [Concomitant]
     Dosage: IN THE MORNING
     Route: 065
  8. WARFARIN [Concomitant]
     Active Substance: WARFARIN
     Dosage: 5 MG/7.5 MG
     Route: 065
  9. NITROFURANTOIN. [Concomitant]
     Active Substance: NITROFURANTOIN
     Indication: CYSTITIS
     Dosage: WHEN NEEDED 100 MG THEN 50 MG??IN THE NIGHT
     Route: 065
  10. TYLENOL [Concomitant]
     Active Substance: ACETAMINOPHEN
     Dosage: 1 EVENING
     Route: 065
  11. FEMRING [Concomitant]
     Active Substance: ESTRADIOL ACETATE
     Dosage: 05 ESTRADIAL/DAY CHANGE EVERY 3 MO [SIC]??IN THE NIGHT
     Route: 065
  12. XARELTO [Suspect]
     Active Substance: RIVAROXABAN
     Indication: ATRIAL FIBRILLATION
     Dosage: WITH EVENING MEAL
     Route: 048
     Dates: start: 20120822, end: 20130103
  13. BENICAR [Concomitant]
     Active Substance: OLMESARTAN MEDOXOMIL
     Indication: CARDIAC DISORDER
     Route: 048
  14. XARELTO [Suspect]
     Active Substance: RIVAROXABAN
     Indication: CEREBROVASCULAR ACCIDENT PROPHYLAXIS
     Dosage: WITH EVENING MEAL
     Route: 048
     Dates: start: 20120822, end: 20130103
  15. VITAMIN C [Concomitant]
     Active Substance: ASCORBIC ACID
     Dosage: AT MORNING
     Route: 065
  16. ONE A DAY WOMENS^ VITAMIN [Concomitant]
     Dosage: IN THE MORNING
     Route: 065
  17. NISOLDIPINE. [Concomitant]
     Active Substance: NISOLDIPINE
     Indication: BLOOD PRESSURE
     Route: 048
  18. VITAMIN D [Concomitant]
     Active Substance: CHOLECALCIFEROL
     Dosage: IN THE MORNING
     Route: 065
  19. WARFARIN [Concomitant]
     Active Substance: WARFARIN
     Dosage: IN THE NIGHT
     Route: 065
     Dates: start: 20130111
  20. DIGOXIN. [Concomitant]
     Active Substance: DIGOXIN
     Indication: CARDIAC DISORDER
     Route: 048
  21. LIPITOR [Concomitant]
     Active Substance: ATORVASTATIN CALCIUM
     Indication: CARDIAC DISORDER
     Route: 048

REACTIONS (8)
  - Dyspnoea [Not Recovered/Not Resolved]
  - Weight decreased [Not Recovered/Not Resolved]
  - Small intestinal haemorrhage [Recovered/Resolved]
  - Faeces discoloured [Unknown]
  - Oedema peripheral [Recovered/Resolved]
  - Heart valve stenosis [Not Recovered/Not Resolved]
  - Abdominal distension [Unknown]
  - Anaemia [Unknown]

NARRATIVE: CASE EVENT DATE: 2012
